FAERS Safety Report 6025756-6 (Version None)
Quarter: 2008Q4

REPORT INFORMATION
  Report Type: 
  Country: None (occurrence: None)
  Receive Date: 20081224
  Receipt Date: 20081210
  Transmission Date: 20090506
  Serious: Yes (Hospitalization)
  Sender: FDA-Public Use
  Company Number: KV200801091

PATIENT
  Age: 58 Year
  Sex: Female

DRUGS (6)
  1. ISOSORBIDE MONONITRATE [Suspect]
     Indication: CHEST PAIN
     Dosage: 30 MG, QD, ORAL
     Route: 048
     Dates: start: 20020101
  2. PROCARDIA [Concomitant]
  3. LASIX [Concomitant]
  4. ASPIRIN [Concomitant]
  5. ZANTAC	/00550802/ (RANITIDINE HYDROCHLORIDE) [Concomitant]
  6. STOOL SOFTENER (DOCUSATE SODIUM) [Concomitant]

REACTIONS (3)
  - CHEST PAIN [None]
  - DRUG INEFFECTIVE [None]
  - PRODUCT QUALITY ISSUE [None]
